FAERS Safety Report 13413940 (Version 2)
Quarter: 2017Q2

REPORT INFORMATION
  Report Type: Spontaneous
  Country: ES (occurrence: ES)
  Receive Date: 20170407
  Receipt Date: 20170413
  Transmission Date: 20170830
  Serious: Yes (Other)
  Sender: FDA-Public Use
  Company Number: ES-EMD SERONO-8151458

PATIENT
  Age: 31 Year
  Sex: Female

DRUGS (4)
  1. REBIF [Suspect]
     Active Substance: INTERFERON BETA-1A
     Dates: start: 2012, end: 20170215
  2. EUTHYROX [Concomitant]
     Active Substance: LEVOTHYROXINE SODIUM
     Indication: AUTOIMMUNE HYPOTHYROIDISM
  3. REBIF [Suspect]
     Active Substance: INTERFERON BETA-1A
     Dosage: DOSE REDUCED
     Dates: start: 2009, end: 201107
  4. REBIF [Suspect]
     Active Substance: INTERFERON BETA-1A
     Indication: PRODUCT USED FOR UNKNOWN INDICATION
     Dosage: UNKNOWN DOSAGE

REACTIONS (5)
  - Autoimmune disorder [Unknown]
  - Sensory disturbance [Unknown]
  - Muscle spasms [Unknown]
  - Raynaud^s phenomenon [Unknown]
  - Alopecia [Unknown]

NARRATIVE: CASE EVENT DATE: 2015
